FAERS Safety Report 24095383 (Version 1)
Quarter: 2024Q3

REPORT INFORMATION
  Report Type: Other
  Country: US (occurrence: US)
  Receive Date: 20240716
  Receipt Date: 20240716
  Transmission Date: 20241017
  Serious: No
  Sender: TRAVERE THERAPEUTICS
  Company Number: US-TRAVERE-2024TVT00568

PATIENT
  Age: 61 Year
  Sex: Male

DRUGS (1)
  1. FILSPARI [Suspect]
     Active Substance: SPARSENTAN
     Indication: IgA nephropathy
     Dosage: NDC NUMBER: 68974020030, RX NUMBER: 497919
     Route: 048
     Dates: start: 20240602

REACTIONS (1)
  - Abdominal discomfort [Unknown]
